FAERS Safety Report 24916704 (Version 1)
Quarter: 2025Q1

REPORT INFORMATION
  Report Type: Spontaneous
  Country: US (occurrence: None)
  Receive Date: 20250131
  Receipt Date: 20250131
  Transmission Date: 20250409
  Serious: No
  Sender: FDA-CTU
  Company Number: None

PATIENT
  Age: 77 Year
  Sex: Female
  Weight: 71.55 kg

DRUGS (1)
  1. HIZENTRA [Suspect]
     Active Substance: HUMAN IMMUNOGLOBULIN G
     Indication: Primary immunodeficiency syndrome
     Route: 058
     Dates: start: 20250130, end: 20250130

REACTIONS (3)
  - Feeling cold [None]
  - Pyrexia [None]
  - Asthenia [None]

NARRATIVE: CASE EVENT DATE: 20250130
